FAERS Safety Report 7397537-2 (Version None)
Quarter: 2011Q1

REPORT INFORMATION
  Report Type: 
  Country: None (occurrence: None)
  Receive Date: 20110328
  Receipt Date: 20110318
  Transmission Date: 20110831
  Serious: Yes (Hospitalization)
  Sender: FDA-Public Use
  Company Number: WAES 1103USA02607

PATIENT
  Age: 74 Year

DRUGS (3)
  1. BEVACIZUMAB [Suspect]
  2. IRINOTECAN HCL [Suspect]
  3. CAP VORINOSTAT UNK [Suspect]

REACTIONS (1)
  - CEREBRAL ISCHAEMIA [None]
